FAERS Safety Report 20646359 (Version 1)
Quarter: 2022Q1

REPORT INFORMATION
  Report Type: Spontaneous
  Country: US (occurrence: US)
  Receive Date: 20220329
  Receipt Date: 20220329
  Transmission Date: 20220424
  Serious: Yes (Other)
  Sender: FDA-Public Use
  Company Number: US-SA-SAC20220324001601

PATIENT
  Age: 43 Year
  Sex: Male

DRUGS (1)
  1. ZANTAC [Suspect]
     Active Substance: RANITIDINE HYDROCHLORIDE
     Indication: Dyspepsia
     Dosage: 300 MG
     Route: 065
     Dates: start: 201101, end: 201809

REACTIONS (1)
  - Renal cancer stage IV [Unknown]

NARRATIVE: CASE EVENT DATE: 20170521
